FAERS Safety Report 19588557 (Version 3)
Quarter: 2021Q3

REPORT INFORMATION
  Report Type: Report from Study
  Country: US (occurrence: US)
  Receive Date: 20210721
  Receipt Date: 20210925
  Transmission Date: 20211014
  Serious: Yes (Other)
  Sender: FDA-Public Use
  Company Number: NVSC2021US158524

PATIENT
  Age: 9 Year
  Sex: Female

DRUGS (1)
  1. OMNITROPE [Suspect]
     Active Substance: SOMATROPIN
     Indication: PRODUCT USED FOR UNKNOWN INDICATION
     Dosage: 0.8 MG, QD
     Route: 058
     Dates: start: 20210709

REACTIONS (4)
  - Haemorrhage [Unknown]
  - Injection site pain [Unknown]
  - Nervousness [Unknown]
  - Product leakage [Unknown]

NARRATIVE: CASE EVENT DATE: 20210711
